FAERS Safety Report 25795638 (Version 1)
Quarter: 2025Q3

REPORT INFORMATION
  Report Type: Spontaneous
  Country: CN (occurrence: CN)
  Receive Date: 20250912
  Receipt Date: 20250912
  Transmission Date: 20251021
  Serious: Yes (Hospitalization, Other)
  Sender: Kenvue
  Company Number: CN-KENVUE-20250903723

PATIENT

DRUGS (4)
  1. CHILDRENS MOTRIN [Suspect]
     Active Substance: IBUPROFEN
     Indication: Headache
     Route: 065
     Dates: start: 202505
  2. CHILDRENS MOTRIN [Suspect]
     Active Substance: IBUPROFEN
     Route: 065
     Dates: start: 20250509
  3. Kun tai [Concomitant]
     Indication: Menstrual cycle management
     Route: 065
     Dates: start: 202505
  4. HERBALS [Concomitant]
     Active Substance: HERBALS
     Indication: Menstrual cycle management
     Route: 065
     Dates: start: 202505

REACTIONS (3)
  - Product administered to patient of inappropriate age [Unknown]
  - Suspected product quality issue [Unknown]
  - Drug-induced liver injury [Recovered/Resolved]

NARRATIVE: CASE EVENT DATE: 20250501
